FAERS Safety Report 10204891 (Version 2)
Quarter: 2014Q2

REPORT INFORMATION
  Report Type: Spontaneous
  Country: JP (occurrence: JP)
  Receive Date: 20140529
  Receipt Date: 20140613
  Transmission Date: 20141212
  Serious: Yes (Other)
  Sender: FDA-Public Use
  Company Number: JP-BAYER-2014-076293

PATIENT
  Age: 82 Year
  Sex: Female
  Weight: 59 kg

DRUGS (6)
  1. BAYASPIRIN [Suspect]
     Indication: CEREBRAL INFARCTION
     Dosage: DAILY DOSE 100 MG
     Route: 048
     Dates: start: 20121030
  2. ALFACALCIDOL [Concomitant]
     Dosage: DAILY DOSE 1 ?G
     Route: 048
  3. ASPARA-CA [Concomitant]
     Dosage: DAILY DOSE 800 MG
     Route: 048
  4. AMLODIPINE [Concomitant]
     Dosage: DAILY DOSE 2.5 MG
     Route: 048
  5. CARNACULIN [KALLIDINOGENASE] [Concomitant]
     Dosage: DAILY DOSE 150 MG
     Route: 048
  6. MECOBALAMIN [Concomitant]
     Dosage: DAILY DOSE 1500 ?G

REACTIONS (1)
  - Dyspnoea [Not Recovered/Not Resolved]
